FAERS Safety Report 13289230 (Version 2)
Quarter: 2017Q2

REPORT INFORMATION
  Report Type: Spontaneous
  Country: US (occurrence: US)
  Receive Date: 20170302
  Receipt Date: 20170502
  Transmission Date: 20170830
  Serious: No
  Sender: FDA-Public Use
  Company Number: US-SHIRE-US201703296

PATIENT
  Age: 53 Year
  Sex: Female

DRUGS (1)
  1. XIIDRA [Suspect]
     Active Substance: LIFITEGRAST
     Indication: ENDOCRINE OPHTHALMOPATHY
     Dosage: UNK, 2X/DAY:BID (BOTH EYES)
     Route: 047
     Dates: start: 20170110

REACTIONS (2)
  - No adverse event [Not Recovered/Not Resolved]
  - Product use in unapproved indication [Not Recovered/Not Resolved]

NARRATIVE: CASE EVENT DATE: 20170110
